FAERS Safety Report 8612342-4 (Version None)
Quarter: 2012Q3

REPORT INFORMATION
  Report Type: 
  Country: None (occurrence: None)
  Receive Date: 20120810
  Receipt Date: 20120810
  Transmission Date: 20120928
  Serious: No
  Sender: FDA-Public Use
  Company Number: None

PATIENT
  Sex: Female
  Weight: 123.3784 kg

DRUGS (1)
  1. CHORIONIC GONADOTROPIN [Suspect]
     Indication: WEIGHT DECREASED
     Dates: start: 20120724, end: 20120809

REACTIONS (1)
  - NO ADVERSE EVENT [None]
